FAERS Safety Report 6150408-1 (Version None)
Quarter: 2009Q2

REPORT INFORMATION
  Report Type: 
  Country: None (occurrence: None)
  Receive Date: 20090409
  Receipt Date: 20090407
  Transmission Date: 20091009
  Serious: Yes (Other)
  Sender: FDA-Public Use
  Company Number: GB-BRISTOL-MYERS SQUIBB COMPANY-14578272

PATIENT
  Sex: Female

DRUGS (1)
  1. MOLIPAXIN [Suspect]
     Indication: DEPRESSION
     Dates: start: 20090309, end: 20090316

REACTIONS (4)
  - ANAPHYLACTIC SHOCK [None]
  - MALAISE [None]
  - MOVEMENT DISORDER [None]
  - MUSCLE SPASMS [None]
